FAERS Safety Report 9889272 (Version 2)
Quarter: 2014Q1

REPORT INFORMATION
  Report Type: Report from Study
  Country: US (occurrence: US)
  Receive Date: 20140211
  Receipt Date: 20140314
  Transmission Date: 20141002
  Serious: Yes (Hospitalization)
  Sender: FDA-Public Use
  Company Number: US-ACTELION-A-US2014-94747

PATIENT
  Age: 83 Year
  Sex: Female

DRUGS (2)
  1. VENTAVIS [Suspect]
     Indication: PULMONARY ARTERIAL HYPERTENSION
     Dosage: 5 MCG, QID
     Route: 055
     Dates: start: 2009
  2. SILDENAFIL [Concomitant]
     Dosage: UNK

REACTIONS (2)
  - Neck pain [Recovering/Resolving]
  - Pain in extremity [Recovering/Resolving]
